FAERS Safety Report 6115489-X (Version None)
Quarter: 2009Q1

REPORT INFORMATION
  Report Type: 
  Country: None (occurrence: None)
  Receive Date: 20090313
  Receipt Date: 20090306
  Transmission Date: 20090719
  Serious: Yes (Hospitalization)
  Sender: FDA-Public Use
  Company Number: BR-ABBOTT-09P-020-0561013-02

PATIENT
  Sex: Male

DRUGS (3)
  1. RITONAVIR SOFT GELATIN CAPSULES [Suspect]
     Indication: HIV INFECTION
     Route: 048
     Dates: start: 20060824
  2. TMC 125 [Concomitant]
     Indication: HIV INFECTION
     Route: 048
     Dates: start: 20060824
  3. TMC 114 [Concomitant]
     Indication: HIV INFECTION
     Dates: start: 20060824

REACTIONS (2)
  - HEADACHE [None]
  - SUBDURAL EFFUSION [None]
